FAERS Safety Report 10265961 (Version 1)
Quarter: 2014Q2

REPORT INFORMATION
  Report Type: Report from Study
  Country: US (occurrence: US)
  Receive Date: 20140627
  Receipt Date: 20140627
  Transmission Date: 20141212
  Serious: Yes (Life-Threatening, Hospitalization, Other)
  Sender: FDA-Public Use
  Company Number: US-ABBVIE-14P-163-1251944-00

PATIENT
  Age: 71 Year
  Sex: Male
  Weight: 83.54 kg

DRUGS (13)
  1. HUMIRA [Suspect]
     Indication: COLITIS ULCERATIVE
     Route: 058
     Dates: start: 201309, end: 201309
  2. HUMIRA [Suspect]
     Route: 058
     Dates: start: 201309, end: 201309
  3. HUMIRA [Suspect]
     Route: 058
     Dates: start: 201310, end: 201402
  4. AMIODARONE [Concomitant]
     Indication: ATRIAL FIBRILLATION
  5. PROPRANOLOL [Concomitant]
     Indication: HYPERTENSION
  6. PLAVIX [Concomitant]
     Indication: MYOCARDIAL INFARCTION
     Dates: start: 1997
  7. QUINAPRIL [Concomitant]
     Indication: HYPERTENSION
  8. VITAMIN D3 [Concomitant]
     Indication: VITAMIN D DEFICIENCY
  9. CALCIUM [Concomitant]
     Indication: VITAMIN SUPPLEMENTATION
     Dates: end: 201402
  10. ATORVASTATIN [Concomitant]
     Indication: PROPHYLAXIS
     Dates: start: 201403
  11. ASPIRIN [Concomitant]
     Indication: PRODUCT USED FOR UNKNOWN INDICATION
  12. WARFARIN [Concomitant]
     Indication: ATRIAL FIBRILLATION
  13. PRILOSEC [Concomitant]
     Indication: GASTROOESOPHAGEAL REFLUX DISEASE

REACTIONS (7)
  - Haematochezia [Recovered/Resolved]
  - Red blood cell count decreased [Recovered/Resolved]
  - Colitis ulcerative [Not Recovered/Not Resolved]
  - Myocardial infarction [Recovered/Resolved]
  - Cardiac arrest [Recovered/Resolved]
  - Drug ineffective [Not Recovered/Not Resolved]
  - Pallor [Recovered/Resolved]
